FAERS Safety Report 9094669 (Version 2)
Quarter: 2013Q3

REPORT INFORMATION
  Report Type: Report from Study
  Country: UG (occurrence: UG)
  Receive Date: 20130204
  Receipt Date: 20130912
  Transmission Date: 20140515
  Serious: Yes (Other)
  Sender: FDA-Public Use
  Company Number: UG-009507513-1103USA03098

PATIENT
  Age: 22 Year
  Sex: Male

DRUGS (5)
  1. RALTEGRAVIR POTASSIUM [Suspect]
     Indication: HIV INFECTION
     Dosage: UNK
     Route: 048
     Dates: start: 20110124, end: 20110321
  2. RALTEGRAVIR POTASSIUM [Suspect]
     Dosage: UNK
     Route: 048
  3. LOPINAVIR (+) RITONAVIR [Suspect]
     Indication: HIV INFECTION
     Dosage: UNK
     Route: 048
     Dates: start: 20110124, end: 20110321
  4. LOPINAVIR (+) RITONAVIR [Suspect]
     Dosage: UNK
     Route: 048
  5. SEPTRIN [Concomitant]
     Dosage: UNK
     Route: 048
     Dates: start: 20090622, end: 20110321

REACTIONS (3)
  - Hypersensitivity [Not Recovered/Not Resolved]
  - Adverse event [Unknown]
  - Blood bilirubin increased [Recovered/Resolved]
